FAERS Safety Report 4690744-9 (Version None)
Quarter: 2005Q2

REPORT INFORMATION
  Report Type: 
  Country: None (occurrence: None)
  Receive Date: 20050614
  Receipt Date: 20050614
  Transmission Date: 20051028
  Serious: Yes (Other)
  Sender: FDA-Public Use
  Company Number: None

PATIENT
  Sex: Male
  Weight: 81.6475 kg

DRUGS (2)
  1. LEXAPRO [Suspect]
     Indication: ANXIETY
     Dates: start: 20050501, end: 20050611
  2. LEXAPRO [Suspect]
     Indication: DEPRESSION
     Dates: start: 20050501, end: 20050611

REACTIONS (9)
  - ABDOMINAL DISTENSION [None]
  - DYSURIA [None]
  - FLATULENCE [None]
  - HYPERHIDROSIS [None]
  - IMPAIRED WORK ABILITY [None]
  - IRRITABILITY [None]
  - LOSS OF LIBIDO [None]
  - MUSCLE SPASMS [None]
  - PROSTATIC DISORDER [None]
